FAERS Safety Report 4945575-9 (Version None)
Quarter: 2006Q1

REPORT INFORMATION
  Report Type: 
  Country: None (occurrence: None)
  Receive Date: 20060117
  Receipt Date: 20051031
  Transmission Date: 20060701
  Serious: Yes (Other)
  Sender: FDA-Public Use
  Company Number: A03200503482

PATIENT
  Age: 76 Year
  Sex: Male
  Weight: 78.4723 kg

DRUGS (8)
  1. PLAVIX [Suspect]
     Dosage: ORAL
     Route: 048
  2. ALKA-SELTZER - ASA + SODIUM BICARBONATE  TABLET - MG [Suspect]
     Indication: HYPERCHLORHYDRIA
     Dosage: ORAL
     Route: 048
     Dates: start: 20050901, end: 20050101
  3. METOPROLOL SUCCINATE [Concomitant]
  4. VALSARTAN [Concomitant]
  5. ISOSORBIDE MONONITRATE [Concomitant]
  6. SPIRONOLACTONE W/HYDROCHOROTHIAZIDE [Concomitant]
  7. MORPHINE [Concomitant]
  8. AMLODIPINE AND ATROVASTAIN [Concomitant]

REACTIONS (5)
  - ABDOMINAL PAIN UPPER [None]
  - CONTUSION [None]
  - EPISTAXIS [None]
  - GASTRIC ULCER HAEMORRHAGE [None]
  - NAUSEA [None]
